FAERS Safety Report 20349956 (Version 1)
Quarter: 2022Q1

REPORT INFORMATION
  Report Type: Spontaneous
  Country: US (occurrence: None)
  Receive Date: 20220119
  Receipt Date: 20220119
  Transmission Date: 20220424
  Serious: Yes (Death, Hospitalization)
  Sender: FDA-Public Use
  Company Number: None

PATIENT
  Age: 81 Year
  Sex: Female
  Weight: 42.9 kg

DRUGS (3)
  1. FLUOROURACIL [Suspect]
     Active Substance: FLUOROURACIL
     Dates: end: 20210203
  2. LEUCOVORIN CALCIUM [Suspect]
     Active Substance: LEUCOVORIN CALCIUM
     Dates: end: 20210203
  3. IRINOTECAN HYDROCHLORIDE [Suspect]
     Active Substance: IRINOTECAN HYDROCHLORIDE
     Dates: end: 20210203

REACTIONS (9)
  - Fatigue [None]
  - Weight decreased [None]
  - Diarrhoea [None]
  - Mucosal inflammation [None]
  - Failure to thrive [None]
  - Asthenia [None]
  - Deep vein thrombosis [None]
  - Dehydration [None]
  - Stomatitis [None]

NARRATIVE: CASE EVENT DATE: 20210301
